FAERS Safety Report 11386866 (Version 1)
Quarter: 2015Q3

REPORT INFORMATION
  Report Type: Spontaneous
  Country: US (occurrence: US)
  Receive Date: 20150817
  Receipt Date: 20150817
  Transmission Date: 20151125
  Serious: No
  Sender: FDA-Public Use
  Company Number: US-PFIZER INC-2015261807

PATIENT
  Age: 58 Year
  Sex: Male

DRUGS (34)
  1. LASIX [Concomitant]
     Active Substance: FUROSEMIDE
     Dosage: 20 MG, DAILY
     Route: 048
     Dates: end: 20150715
  2. XANAX [Suspect]
     Active Substance: ALPRAZOLAM
     Dosage: 0.25 MG (1 TABLET BY MOUTH 2 TIMES DAILY AS NEEDED)
     Route: 048
  3. CYMBALTA [Concomitant]
     Active Substance: DULOXETINE HYDROCHLORIDE
     Dosage: 60 MG, UNK
     Route: 048
  4. GLUCOSAMINE/CHONDROITIN [Concomitant]
     Dosage: UNK
     Route: 048
  5. VITAMIN D3 [Concomitant]
     Active Substance: CHOLECALCIFEROL
     Dosage: 5000 IU, DAILY
     Route: 048
  6. CARDURA [Suspect]
     Active Substance: DOXAZOSIN MESYLATE
     Dosage: 8 MG, 2X/DAY
     Route: 048
  7. CIPROFLOXACIN HCL [Concomitant]
     Active Substance: CIPROFLOXACIN HYDROCHLORIDE
     Dosage: 750 MG, UNK
  8. AMARYL [Concomitant]
     Active Substance: GLIMEPIRIDE
     Dosage: 2 MG, 2X/DAY
     Route: 048
  9. AUGMENTIN [Concomitant]
     Active Substance: AMOXICILLIN\CLAVULANATE POTASSIUM
     Indication: CELLULITIS
     Dosage: UNK (AMOXICILLIN SODIUM:875 MG-CLAVULANATE POTASSIUM: 125 MG )
     Dates: start: 20150715
  10. GLEEVEC [Concomitant]
     Active Substance: IMATINIB MESYLATE
     Dosage: 400 MG, UNK
     Route: 048
  11. SYNTHROID [Concomitant]
     Active Substance: LEVOTHYROXINE SODIUM
     Dosage: 33 UG/24H, DAILY
     Route: 048
  12. SINGULAIR [Concomitant]
     Active Substance: MONTELUKAST SODIUM
     Dosage: 10 MG, UNK
  13. ZYRTEC [Suspect]
     Active Substance: CETIRIZINE HYDROCHLORIDE
     Dosage: 10 MG, DAILY (TAKE 1 AND 1/2 DAILY)
  14. GREEN TEA EXTRACT [Concomitant]
     Dosage: UNK, DAILY
     Route: 048
  15. K-DUR [Concomitant]
     Active Substance: POTASSIUM CHLORIDE
     Dosage: 20 MEQ, DAILY
     Route: 048
  16. ZANTAC [Concomitant]
     Active Substance: RANITIDINE HYDROCHLORIDE
     Dosage: 300 MG, 2X/DAY
     Route: 048
  17. NEURONTIN [Suspect]
     Active Substance: GABAPENTIN
     Dosage: 800 MG, UNK
     Route: 048
  18. VITAMIN B12 [Concomitant]
     Active Substance: CYANOCOBALAMIN
     Dosage: 2500 ?G, DAILY
     Route: 048
  19. FISH OIL [Concomitant]
     Active Substance: FISH OIL
     Dosage: 1000 MG, 3X/DAY WITH MEALS
     Route: 048
  20. ZOFRAN [Concomitant]
     Active Substance: ONDANSETRON HYDROCHLORIDE
     Indication: NAUSEA
     Dosage: 8 MG, AS NEEDED (2 TIMES DAILY)
     Route: 048
  21. ROXICODONE [Concomitant]
     Active Substance: OXYCODONE HYDROCHLORIDE
     Indication: PAIN
     Dosage: 10 MG, AS NEEDED (SIG: 1-2 TABLETS EVERY 6 HRS PRN)
     Route: 048
  22. KLOR-CON [Concomitant]
     Active Substance: POTASSIUM CHLORIDE
     Dosage: 20 MEQ, DAILY
     Route: 048
  23. SUTENT [Suspect]
     Active Substance: SUNITINIB MALATE
     Indication: GASTROINTESTINAL STROMAL TUMOUR
     Dosage: 37.5 MG, DAILY
     Route: 048
     Dates: start: 200904, end: 200907
  24. ALDACTONE [Suspect]
     Active Substance: SPIRONOLACTONE
     Dosage: 50 MG, UNK
  25. VITAMIN C [Concomitant]
     Active Substance: ASCORBIC ACID
     Dosage: 1000 MG, DAILY
     Route: 048
  26. ASPIRIN. [Concomitant]
     Active Substance: ASPIRIN
     Dosage: 81 MG, DAILY
     Route: 048
  27. GARCINIA CAMBOGIA COMP [Concomitant]
     Active Substance: DIETARY SUPPLEMENT
     Dosage: UNK, DAILY
     Route: 048
  28. AFINITOR [Concomitant]
     Active Substance: EVEROLIMUS
     Dosage: 10 MG, DAILY
     Route: 048
  29. HEXAVITAMIN [Concomitant]
     Dosage: 1 DF, DAILY
     Route: 048
  30. PRILOSEC [Concomitant]
     Active Substance: OMEPRAZOLE MAGNESIUM
     Dosage: 20 MG, UNK
     Route: 048
  31. OXYCONTIN [Concomitant]
     Active Substance: OXYCODONE HYDROCHLORIDE
     Dosage: 40 MG, DAILY (1 TABLET BY MOUTH EVERY 12 HR)
     Route: 048
  32. LIPITOR [Suspect]
     Active Substance: ATORVASTATIN CALCIUM
     Dosage: 40 MG, DAILY
     Route: 048
  33. COZAAR [Concomitant]
     Active Substance: LOSARTAN POTASSIUM
     Dosage: 100 MG, DAILY
     Route: 048
  34. COMPAZINE [Concomitant]
     Active Substance: PROCHLORPERAZINE MALEATE
     Indication: NAUSEA
     Dosage: 10 MG, AS NEEDED (1 TABLET BY MOUTH EVERY 6 HOURS)

REACTIONS (4)
  - Oedema [Unknown]
  - Musculoskeletal pain [Unknown]
  - Disease progression [Unknown]
  - Gastrointestinal stromal tumour [Unknown]
